FAERS Safety Report 20762391 (Version 4)
Quarter: 2022Q4

REPORT INFORMATION
  Report Type: Spontaneous
  Country: US (occurrence: US)
  Receive Date: 20220428
  Receipt Date: 20221115
  Transmission Date: 20230113
  Serious: No
  Sender: FDA-Public Use
  Company Number: US-PFIZER INC-202200380097

PATIENT
  Age: 64 Year
  Sex: Female

DRUGS (2)
  1. IBRANCE [Suspect]
     Active Substance: PALBOCICLIB
     Dosage: UNK MG
     Dates: start: 20191219
  2. IBRANCE [Suspect]
     Active Substance: PALBOCICLIB
     Dosage: UNK
     Dates: start: 20191220, end: 20220422

REACTIONS (4)
  - White blood cell count decreased [Unknown]
  - Alopecia [Unknown]
  - Scratch [Unknown]
  - Infection [Unknown]

NARRATIVE: CASE EVENT DATE: 20191220
